FAERS Safety Report 21902552 (Version 1)
Quarter: 2023Q1

REPORT INFORMATION
  Report Type: Spontaneous
  Country: US (occurrence: US)
  Receive Date: 20230124
  Receipt Date: 20230124
  Transmission Date: 20230418
  Serious: No
  Sender: FDA-Public Use
  Company Number: US-TEVA-2023-US-2844827

PATIENT
  Sex: Female

DRUGS (2)
  1. BUPROPION [Suspect]
     Active Substance: BUPROPION
     Indication: Depression
     Dosage: 300 MILLIGRAM EXTENDED / SUSTAINED RELEASE
     Route: 065
  2. BUPROPION [Suspect]
     Active Substance: BUPROPION
     Dosage: 150 MILLIGRAM ,EXTENDED / SUSTAINED RELEASE
     Route: 065

REACTIONS (1)
  - Drug ineffective [Unknown]
